FAERS Safety Report 11309613 (Version 2)
Quarter: 2015Q4

REPORT INFORMATION
  Report Type: Spontaneous
  Country: FR (occurrence: FR)
  Receive Date: 20150724
  Receipt Date: 20151223
  Transmission Date: 20160304
  Serious: Yes (Other)
  Sender: FDA-Public Use
  Company Number: FR-ABBVIE-15P-056-1431159-00

PATIENT
  Age: 32 Year
  Sex: Female

DRUGS (1)
  1. ENANTONE LP [Suspect]
     Active Substance: LEUPROLIDE ACETATE
     Indication: ENDOMETRIOSIS
     Dosage: 11.25 MG, UNK
     Route: 058
     Dates: start: 20150530, end: 20150530

REACTIONS (13)
  - Vomiting [Recovered/Resolved]
  - Injection site swelling [Recovered/Resolved]
  - Headache [Recovered/Resolved]
  - Diarrhoea [Recovered/Resolved]
  - Back pain [Recovering/Resolving]
  - Night sweats [Recovered/Resolved]
  - Hot flush [Recovered/Resolved]
  - Impaired work ability [None]
  - Palpitations [Recovered/Resolved]
  - Muscle spasms [Recovered/Resolved]
  - Tremor [Recovered/Resolved]
  - Sleep disorder [Recovered/Resolved]
  - Affective disorder [Recovering/Resolving]

NARRATIVE: CASE EVENT DATE: 20150530
